FAERS Safety Report 18260904 (Version 1)
Quarter: 2020Q3

REPORT INFORMATION
  Report Type: Spontaneous
  Country: US (occurrence: US)
  Receive Date: 20200914
  Receipt Date: 20200914
  Transmission Date: 20201103
  Serious: Yes (Other)
  Sender: FDA-Public Use
  Company Number: US-ABBVIE-20K-163-3557695-00

PATIENT
  Age: 66 Year
  Sex: Male
  Weight: 98.52 kg

DRUGS (9)
  1. DUOPA [Suspect]
     Active Substance: CARBIDOPA\LEVODOPA
     Indication: PARKINSON^S DISEASE
     Route: 050
     Dates: start: 20200831
  2. CARBIDOPA LEVODOPA [Concomitant]
     Active Substance: CARBIDOPA\LEVODOPA
     Indication: PARKINSON^S DISEASE
  3. ESCITALOPRAM [Concomitant]
     Active Substance: ESCITALOPRAM OXALATE
     Indication: ANXIETY
  4. GABAPENTIN. [Concomitant]
     Active Substance: GABAPENTIN
     Indication: PARKINSON^S DISEASE
  5. ROPINIROLE. [Concomitant]
     Active Substance: ROPINIROLE
     Indication: PARKINSON^S DISEASE
  6. AMLODIPINE BESYLATE. [Concomitant]
     Active Substance: AMLODIPINE BESYLATE
     Indication: HYPERTENSION
  7. INBRIJA [Concomitant]
     Active Substance: LEVODOPA
     Indication: PARKINSON^S DISEASE
  8. DUOPA [Suspect]
     Active Substance: CARBIDOPA\LEVODOPA
  9. RIVASTIGMINE. [Concomitant]
     Active Substance: RIVASTIGMINE
     Indication: COGNITIVE DISORDER

REACTIONS (3)
  - White blood cell count increased [Unknown]
  - Device dislocation [Unknown]
  - Device leakage [Unknown]

NARRATIVE: CASE EVENT DATE: 20200903
